FAERS Safety Report 7823936-8 (Version None)
Quarter: 2011Q4

REPORT INFORMATION
  Report Type: 
  Country: None (occurrence: None)
  Receive Date: 20111018
  Receipt Date: 20111018
  Transmission Date: 20120403
  Serious: Yes (Life-Threatening)
  Sender: FDA-Public Use
  Company Number: None

PATIENT
  Age: 73 Year
  Sex: Female
  Weight: 107 kg

DRUGS (2)
  1. VITAMIN K TAB [Suspect]
     Indication: HAEMATURIA
     Dosage: VITAMIN K 10MG X1 IV
     Route: 042
     Dates: start: 20111013
  2. VITAMIN K TAB [Suspect]
     Indication: COAGULOPATHY
     Dosage: VITAMIN K 10MG X1 IV
     Route: 042
     Dates: start: 20111013

REACTIONS (3)
  - EYE MOVEMENT DISORDER [None]
  - RESPIRATORY ARREST [None]
  - DYSKINESIA [None]
